FAERS Safety Report 16187063 (Version 1)
Quarter: 2019Q2

REPORT INFORMATION
  Report Type: Spontaneous
  Country: FR (occurrence: FR)
  Receive Date: 20190411
  Receipt Date: 20190411
  Transmission Date: 20190711
  Serious: Yes (Other)
  Sender: FDA-Public Use
  Company Number: FR-CANTON LABORATORIES, LLC-2065717

PATIENT
  Age: 9 Year
  Sex: Female
  Weight: 35.2 kg

DRUGS (3)
  1. BCG VACCINE (CALMETTEGUERIN BACILLES, MYOBACTERIUM BOVIS, MOREAU STRAI [Suspect]
     Active Substance: BACILLUS CALMETTE-GUERIN SUBSTRAIN MOREAU RDJ LIVE ANTIGEN
     Route: 058
     Dates: start: 20180813
  2. NAPROSYN [Suspect]
     Active Substance: NAPROXEN
     Indication: STILL^S DISEASE
     Route: 048
     Dates: start: 201805
  3. METHOTREXATE SODIUM. [Concomitant]
     Active Substance: METHOTREXATE SODIUM
     Route: 048

REACTIONS (2)
  - Vaccination site inflammation [Not Recovered/Not Resolved]
  - Injection site abscess [Not Recovered/Not Resolved]

NARRATIVE: CASE EVENT DATE: 20180913
